FAERS Safety Report 17567604 (Version 1)
Quarter: 2020Q1

REPORT INFORMATION
  Report Type: Report from Study
  Country: US (occurrence: US)
  Receive Date: 20200320
  Receipt Date: 20200320
  Transmission Date: 20200409
  Serious: Yes (Death)
  Sender: FDA-Public Use
  Company Number: US-ASTRAZENECA-2019SF42036

PATIENT
  Age: 23683 Day
  Sex: Male
  Weight: 95.3 kg

DRUGS (2)
  1. LYNPARZA [Suspect]
     Active Substance: OLAPARIB
     Indication: PROSTATE CANCER
     Dosage: 150.0MG UNKNOWN
     Route: 048
  2. LYNPARZA [Suspect]
     Active Substance: OLAPARIB
     Indication: PROSTATE CANCER
     Route: 048
     Dates: start: 201908

REACTIONS (3)
  - Death [Fatal]
  - Condition aggravated [Unknown]
  - Product dose omission [Unknown]

NARRATIVE: CASE EVENT DATE: 20190921
